FAERS Safety Report 5635856-8 (Version None)
Quarter: 2008Q1

REPORT INFORMATION
  Report Type: 
  Country: None (occurrence: None)
  Receive Date: 20080221
  Receipt Date: 20080211
  Transmission Date: 20080703
  Serious: Yes (Other)
  Sender: FDA-Public Use
  Company Number: 2008US000308

PATIENT
  Age: 43 Year
  Sex: Female

DRUGS (8)
  1. PROGRAF [Suspect]
     Indication: RENAL TRANSPLANT
     Dosage: 4 MG, UID/QD, ORAL; 3 MG, UID/QD, ORAL
     Route: 048
     Dates: start: 20070301
  2. IMURAN [Concomitant]
  3. PREDNISOLONE [Concomitant]
  4. LOSARTAN POTASSIUM [Concomitant]
  5. OMEPRAZOLE [Concomitant]
  6. VITAMIN B12 (HYDROXOCABALAMIN) [Concomitant]
  7. FOLIC ACID [Concomitant]
  8. GENFIBROOSYL (PLANTAGO AFRA) [Concomitant]

REACTIONS (12)
  - ALOPECIA [None]
  - ANAL SPHINCTER ATONY [None]
  - ANORECTAL DISORDER [None]
  - ANXIETY [None]
  - BLOOD CREATININE INCREASED [None]
  - DIARRHOEA [None]
  - FLATULENCE [None]
  - MUCOSAL PIGMENTATION [None]
  - PAIN [None]
  - PELVIC INFLAMMATORY DISEASE [None]
  - TREMOR [None]
  - VAGINAL DISORDER [None]
